FAERS Safety Report 6891393-4 (Version None)
Quarter: 2010Q3

REPORT INFORMATION
  Report Type: 
  Country: None (occurrence: None)
  Receive Date: 20100731
  Receipt Date: 20061201
  Transmission Date: 20110219
  Serious: No
  Sender: FDA-Public Use
  Company Number: US-PFIZER INC-2006110457

PATIENT
  Age: 58 Year
  Sex: Female

DRUGS (3)
  1. DEPO-MEDROL [Suspect]
     Route: 051
     Dates: start: 20060101
  2. ZYRTEC [Suspect]
     Indication: HYPERSENSITIVITY
     Route: 048
  3. PREDNISONE [Suspect]
     Indication: HYPERSENSITIVITY

REACTIONS (1)
  - URTICARIA [None]
